FAERS Safety Report 22974181 (Version 8)
Quarter: 2025Q3

REPORT INFORMATION
  Report Type: Report from Study
  Country: US (occurrence: US)
  Receive Date: 20230923
  Receipt Date: 20250812
  Transmission Date: 20251021
  Serious: Yes (Other)
  Sender: NOVARTIS
  Company Number: US-002147023-NVSC2023US202052

PATIENT
  Sex: Female

DRUGS (1)
  1. KESIMPTA [Suspect]
     Active Substance: OFATUMUMAB
     Indication: Multiple sclerosis
     Dosage: 20 MG, QMO
     Route: 058

REACTIONS (20)
  - Multiple sclerosis [Not Recovered/Not Resolved]
  - Hypoxia [Unknown]
  - Gait disturbance [Not Recovered/Not Resolved]
  - Hyperhidrosis [Unknown]
  - Palpitations [Not Recovered/Not Resolved]
  - Muscular weakness [Unknown]
  - Headache [Unknown]
  - Nausea [Unknown]
  - Dizziness [Unknown]
  - Speech disorder [Unknown]
  - Weight increased [Unknown]
  - Lethargy [Unknown]
  - Feeling abnormal [Unknown]
  - Joint swelling [Unknown]
  - Memory impairment [Unknown]
  - Depressed mood [Unknown]
  - Dyspnoea [Not Recovered/Not Resolved]
  - Nervousness [Unknown]
  - Fatigue [Unknown]
  - Drug ineffective [Unknown]
